FAERS Safety Report 10164272 (Version 1)
Quarter: 2014Q2

REPORT INFORMATION
  Report Type: Spontaneous
  Country: US (occurrence: US)
  Receive Date: 20140510
  Receipt Date: 20140510
  Transmission Date: 20141212
  Serious: No
  Sender: FDA-Public Use
  Company Number: US-BRISTOL-MYERS SQUIBB COMPANY-20094082

PATIENT
  Age: 50 Year
  Sex: Female
  Weight: 64.4 kg

DRUGS (15)
  1. BYETTA [Suspect]
     Dosage: STARTED BYETTA ABOUT 2007-2008
  2. LANTUS [Concomitant]
     Dosage: 1DF=80U, LANTUS 80U QAM AND HS
  3. GABAPENTIN [Concomitant]
     Dosage: 800MG QID
  4. HUMALOG [Concomitant]
     Dosage: 1DF=25UNITS
  5. NEXIUM [Concomitant]
  6. ESTRADIOL [Concomitant]
     Dosage: PATCHES
  7. LIPITOR [Concomitant]
  8. LISINOPRIL [Concomitant]
  9. ONDANSETRON [Concomitant]
     Indication: NAUSEA
     Dosage: ONDANSETRON ODT 4MG PRN NAUSEA
  10. ALLOPURINOL [Concomitant]
  11. RELPAX [Concomitant]
     Indication: MIGRAINE
  12. NORCO [Concomitant]
     Indication: PAIN
     Dosage: 1DF= NORCO 10/325MG PRN Q6H.
  13. FENTANYL PATCH [Concomitant]
  14. VALIUM [Concomitant]
  15. ALBUTEROL INHALER [Concomitant]

REACTIONS (2)
  - Drug ineffective [Unknown]
  - Weight decreased [Unknown]
